FAERS Safety Report 24845189 (Version 3)
Quarter: 2025Q3

REPORT INFORMATION
  Report Type: Spontaneous
  Country: US (occurrence: US)
  Receive Date: 20250115
  Receipt Date: 20250811
  Transmission Date: 20251020
  Serious: No
  Sender: PFIZER
  Company Number: US-PFIZER INC-202500006862

PATIENT
  Age: 59 Year
  Sex: Female

DRUGS (3)
  1. CIBINQO [Suspect]
     Active Substance: ABROCITINIB
  2. CIBINQO [Suspect]
     Active Substance: ABROCITINIB
  3. CIBINQO [Suspect]
     Active Substance: ABROCITINIB
     Dates: start: 202503, end: 202507

REACTIONS (2)
  - Therapeutic product effect incomplete [Unknown]
  - Product dose omission in error [Unknown]
